FAERS Safety Report 8270020-8 (Version None)
Quarter: 2012Q2

REPORT INFORMATION
  Report Type: 
  Country: None (occurrence: None)
  Receive Date: 20120410
  Receipt Date: 20120330
  Transmission Date: 20120825
  Serious: Yes (Death, Hospitalization)
  Sender: FDA-Public Use
  Company Number: US-ROXANE LABORATORIES, INC.-2012-RO-00980RO

PATIENT

DRUGS (3)
  1. HYDROMORPHONE HCL [Suspect]
  2. METHADONE HCL [Suspect]
  3. COCAINE [Suspect]

REACTIONS (3)
  - TOXICITY TO VARIOUS AGENTS [None]
  - MULTIPLE DRUG OVERDOSE [None]
  - PNEUMONIA [None]
